FAERS Safety Report 8354050 (Version 7)
Quarter: 2013Q1

REPORT INFORMATION
  Report Type: Spontaneous
  Country: JP (occurrence: JP)
  Receive Date: 20120125
  Receipt Date: 20130107
  Transmission Date: 20140127
  Serious: Yes (Hospitalization, Other)
  Sender: FDA-Public Use
  Company Number: JP-ROCHE-1032669

PATIENT
  Age: 70 Year
  Sex: Female
  Weight: 42 kg

DRUGS (11)
  1. AVASTIN [Suspect]
     Indication: LUNG ADENOCARCINOMA RECURRENT
     Route: 041
     Dates: start: 20100414, end: 20100414
  2. AVASTIN [Suspect]
     Route: 041
     Dates: start: 20100607, end: 20111018
  3. TARCEVA [Suspect]
     Indication: LUNG ADENOCARCINOMA
     Route: 048
     Dates: start: 20080703
  4. TARCEVA [Suspect]
     Route: 048
     Dates: start: 20080703, end: 20100411
  5. CISPLATIN [Suspect]
     Indication: LUNG ADENOCARCINOMA RECURRENT
     Route: 041
     Dates: start: 20100414, end: 20100414
  6. ALIMTA [Concomitant]
     Indication: LUNG ADENOCARCINOMA RECURRENT
     Route: 041
     Dates: start: 20100414, end: 20100414
  7. MAO-BUSHI-SAISHIN-TO [Concomitant]
     Indication: MALAISE
     Route: 048
     Dates: start: 20100209
  8. RESPLEN [Concomitant]
     Indication: COUGH
     Route: 048
     Dates: start: 20100209
  9. CODEINE PHOSPHATE [Concomitant]
     Indication: COUGH
     Dosage: AT ANY TIME
     Route: 048
     Dates: start: 20100209
  10. MAGNESIUM OXIDE [Concomitant]
     Indication: CONSTIPATION
     Dosage: AT ANY TIME
     Route: 048
     Dates: start: 20100209
  11. MEDICON [Concomitant]
     Indication: COUGH
     Dosage: AT ANY TIME
     Route: 048
     Dates: start: 20100209

REACTIONS (8)
  - Renal salt-wasting syndrome [Recovered/Resolved]
  - Altered state of consciousness [Recovered/Resolved]
  - Hyponatraemia [Recovered/Resolved]
  - Decreased appetite [Unknown]
  - Hypertension [Recovering/Resolving]
  - Malaise [Unknown]
  - Cough [Unknown]
  - Constipation [Unknown]
